FAERS Safety Report 7985860-X (Version None)
Quarter: 2011Q4

REPORT INFORMATION
  Report Type: 
  Country: None (occurrence: None)
  Receive Date: 20111216
  Receipt Date: 20111201
  Transmission Date: 20120403
  Serious: Yes (Other)
  Sender: FDA-Public Use
  Company Number: FR-GENZYME-THYM-1002841

PATIENT
  Sex: Female
  Weight: 59.7 kg

DRUGS (9)
  1. CYCLOPHOSPHAMIDE [Concomitant]
     Indication: BONE MARROW CONDITIONING REGIMEN
     Dosage: 490 MG, QD
     Dates: start: 20110203, end: 20110206
  2. FLUDARABINE PHOSPHATE [Concomitant]
     Indication: BONE MARROW CONDITIONING REGIMEN
     Dosage: 49 MG, QD
     Dates: start: 20110203, end: 20110206
  3. SODIUM BICARBONATE [Concomitant]
     Indication: PRODUCT USED FOR UNKNOWN INDICATION
     Dosage: 100 ML, QID
  4. POLARAMINE [Concomitant]
     Indication: BONE MARROW CONDITIONING REGIMEN
     Dosage: 10 MG, UNK
     Route: 042
     Dates: start: 20110128
  5. THYMOGLOBULIN [Suspect]
     Dosage: 3.5 MG/KG, QD
     Route: 042
     Dates: start: 20110205, end: 20110206
  6. THYMOGLOBULIN [Suspect]
     Indication: BONE MARROW CONDITIONING REGIMEN
     Dosage: 225 MG, QD
     Route: 042
     Dates: start: 20100221, end: 20100225
  7. THYMOGLOBULIN [Suspect]
     Dosage: 147.5 MG, ONCE
     Route: 042
     Dates: start: 20110128, end: 20110128
  8. SOLU-MEDROL [Concomitant]
     Indication: BONE MARROW CONDITIONING REGIMEN
     Dosage: 20 MG, TID
     Dates: start: 20110128
  9. DELURSAN [Concomitant]
     Indication: PRODUCT USED FOR UNKNOWN INDICATION
     Dosage: 500 MG, BID
     Dates: start: 20110129

REACTIONS (1)
  - CYTOLYTIC HEPATITIS [None]
